FAERS Safety Report 5918949-7 (Version None)
Quarter: 2008Q3

REPORT INFORMATION
  Report Type: 
  Country: None (occurrence: None)
  Receive Date: 20080909
  Receipt Date: 20070814
  Transmission Date: 20090109
  Serious: Yes (Hospitalization)
  Sender: FDA-Public Use
  Company Number: 163-20785-07061510

PATIENT
  Age: 81 Year
  Sex: Male

DRUGS (3)
  1. THALOMID [Suspect]
     Indication: MULTIPLE MYELOMA
     Dosage: 200 MG, HS, ORAL ; 400MG-250MG, DAILY, ORAL ; 200 MG, DAILY, ORAL
     Route: 048
     Dates: start: 20030521, end: 20030801
  2. THALOMID [Suspect]
     Indication: MULTIPLE MYELOMA
     Dosage: 200 MG, HS, ORAL ; 400MG-250MG, DAILY, ORAL ; 200 MG, DAILY, ORAL
     Route: 048
     Dates: start: 20070426, end: 20070701
  3. THALOMID [Suspect]
     Indication: MULTIPLE MYELOMA
     Dosage: 200 MG, HS, ORAL ; 400MG-250MG, DAILY, ORAL ; 200 MG, DAILY, ORAL
     Route: 048
     Dates: start: 20070723

REACTIONS (2)
  - ALTERED STATE OF CONSCIOUSNESS [None]
  - DISEASE PROGRESSION [None]
